FAERS Safety Report 18331518 (Version 2)
Quarter: 2021Q1

REPORT INFORMATION
  Report Type: Spontaneous
  Country: US (occurrence: US)
  Receive Date: 20200930
  Receipt Date: 20210316
  Transmission Date: 20210419
  Serious: Yes (Hospitalization, Other)
  Sender: FDA-Public Use
  Company Number: US-ASTRAZENECA-2020SF22567

PATIENT
  Age: 755 Month
  Sex: Female
  Weight: 108.9 kg

DRUGS (23)
  1. PROMETHEGAN [Concomitant]
     Active Substance: PROMETHAZINE HYDROCHLORIDE
     Indication: VOMITING
     Dates: start: 200902
  2. IRON/VITAMIN [Concomitant]
     Indication: SUPPLEMENTATION THERAPY
     Dates: start: 201302
  3. ZANTAC [Concomitant]
     Active Substance: RANITIDINE HYDROCHLORIDE
     Dates: start: 201305, end: 201802
  4. CIPROFLOXACIN. [Concomitant]
     Active Substance: CIPROFLOXACIN
  5. LISINOPRIL/HCTZ [Concomitant]
     Active Substance: HYDROCHLOROTHIAZIDE\LISINOPRIL
     Indication: BLOOD PRESSURE ABNORMAL
     Dates: start: 201008, end: 201209
  6. NITROFURANTOIN. [Concomitant]
     Active Substance: NITROFURANTOIN
     Indication: ANTIBIOTIC THERAPY
     Dates: start: 200610, end: 200707
  7. SULFAMETHOXAZOLE/TRIMETHOPRIM [Concomitant]
     Active Substance: SULFAMETHOXAZOLE\TRIMETHOPRIM
  8. METOCLOPRAMIDE. [Concomitant]
     Active Substance: METOCLOPRAMIDE
  9. NEXIUM 24HR [Suspect]
     Active Substance: ESOMEPRAZOLE MAGNESIUM
     Indication: GASTROOESOPHAGEAL REFLUX DISEASE
     Route: 048
     Dates: start: 2014, end: 201706
  10. NEXIUM 24HR [Suspect]
     Active Substance: ESOMEPRAZOLE MAGNESIUM
     Indication: GASTROOESOPHAGEAL REFLUX DISEASE
     Route: 048
     Dates: start: 2006, end: 2017
  11. OMEPRAZOLE. [Suspect]
     Active Substance: OMEPRAZOLE
     Indication: GASTROOESOPHAGEAL REFLUX DISEASE
     Dosage: GENERIC
     Route: 065
     Dates: start: 201506, end: 201509
  12. HCTZ [Concomitant]
     Active Substance: HYDROCHLOROTHIAZIDE
     Indication: BLOOD PRESSURE ABNORMAL
     Dates: start: 200509, end: 201607
  13. PROMETHEGAN [Concomitant]
     Active Substance: PROMETHAZINE HYDROCHLORIDE
     Indication: NAUSEA
     Dates: start: 200902
  14. NEXIUM [Suspect]
     Active Substance: ESOMEPRAZOLE MAGNESIUM
     Indication: GASTROOESOPHAGEAL REFLUX DISEASE
     Route: 048
     Dates: start: 2006, end: 2017
  15. NEXIUM [Suspect]
     Active Substance: ESOMEPRAZOLE MAGNESIUM
     Indication: GASTROOESOPHAGEAL REFLUX DISEASE
     Route: 048
     Dates: start: 200603, end: 200902
  16. MONTELUKAST [Concomitant]
     Active Substance: MONTELUKAST SODIUM
     Indication: HYPERSENSITIVITY
     Dates: start: 201504, end: 201507
  17. FLUTICASONE. [Concomitant]
     Active Substance: FLUTICASONE
     Indication: STEROID THERAPY
     Dates: start: 201509
  18. BUPROPION. [Concomitant]
     Active Substance: BUPROPION
     Indication: AFFECTIVE DISORDER
     Dates: start: 200602, end: 200808
  19. ATENOLOL/CHLORTHALIDONE [Concomitant]
     Active Substance: ATENOLOL\CHLORTHALIDONE
     Indication: BLOOD PRESSURE ABNORMAL
     Dates: start: 200707, end: 201212
  20. TOPAMAX [Concomitant]
     Active Substance: TOPIRAMATE
     Indication: ANTICONVULSANT DRUG LEVEL
     Dates: start: 200705, end: 200711
  21. ATENOLOL. [Concomitant]
     Active Substance: ATENOLOL
     Indication: BLOOD PRESSURE ABNORMAL
     Dates: start: 200603, end: 201607
  22. CIMETIDINE [Concomitant]
     Active Substance: CIMETIDINE
     Dates: start: 199807, end: 201304
  23. ENALAPRIL [Concomitant]
     Active Substance: ENALAPRIL

REACTIONS (1)
  - Chronic kidney disease [Not Recovered/Not Resolved]

NARRATIVE: CASE EVENT DATE: 201610
